FAERS Safety Report 20494664 (Version 1)
Quarter: 2022Q1

REPORT INFORMATION
  Report Type: Report from Study
  Country: IN (occurrence: IN)
  Receive Date: 20220221
  Receipt Date: 20220221
  Transmission Date: 20220423
  Serious: Yes (Death)
  Sender: FDA-Public Use
  Company Number: IN-BRISTOL-MYERS SQUIBB COMPANY-BMS-2022-024571

PATIENT
  Age: 35 Year
  Sex: Male
  Weight: 64.8 kg

DRUGS (1)
  1. NIVOLUMAB [Suspect]
     Active Substance: NIVOLUMAB
     Indication: Squamous cell carcinoma of head and neck
     Dosage: 195 MILLIGRAM, Q2WK
     Route: 042
     Dates: start: 20211006

REACTIONS (1)
  - General physical health deterioration [Fatal]
